FAERS Safety Report 24968895 (Version 2)
Quarter: 2025Q3

REPORT INFORMATION
  Report Type: Report from Study
  Country: US (occurrence: US)
  Receive Date: 20250214
  Receipt Date: 20250810
  Transmission Date: 20251021
  Serious: Yes (Other)
  Sender: ALEXION PHARMACEUTICALS
  Company Number: US-AstraZeneca-CH-00803014A

PATIENT
  Sex: Female

DRUGS (1)
  1. OLAPARIB [Suspect]
     Active Substance: OLAPARIB

REACTIONS (10)
  - Fatigue [Unknown]
  - Fibromyalgia [Unknown]
  - Snoring [Unknown]
  - Weight increased [Unknown]
  - Parosmia [Unknown]
  - Gingival pain [Unknown]
  - Nausea [Unknown]
  - Rheumatoid arthritis [Unknown]
  - Sleep paralysis [Unknown]
  - Abnormal dreams [Unknown]
